FAERS Safety Report 25321894 (Version 2)
Quarter: 2025Q2

REPORT INFORMATION
  Report Type: Spontaneous
  Country: US (occurrence: US)
  Receive Date: 20250516
  Receipt Date: 20250526
  Transmission Date: 20250717
  Serious: No
  Sender: Kenvue
  Company Number: US-KENVUE-20250502833

PATIENT
  Age: 56 Year
  Sex: Male

DRUGS (2)
  1. MENS ROGAINE EXTRA STRENGTH [Suspect]
     Active Substance: MINOXIDIL
     Indication: Alopecia
     Dosage: WHOLE CAPFUL, TWICE A DAY
     Route: 061
     Dates: start: 202502, end: 2025
  2. MENS ROGAINE EXTRA STRENGTH [Suspect]
     Active Substance: MINOXIDIL
     Dosage: WHOLE CAPFUL, TWICE A DAY
     Route: 061
     Dates: start: 202501, end: 2025

REACTIONS (4)
  - Alopecia [Recovering/Resolving]
  - Application site pain [Recovering/Resolving]
  - Application site erythema [Recovering/Resolving]
  - Overdose [Unknown]

NARRATIVE: CASE EVENT DATE: 20250101
